FAERS Safety Report 11684548 (Version 6)
Quarter: 2016Q2

REPORT INFORMATION
  Report Type: Report from Study
  Country: CA (occurrence: CA)
  Receive Date: 20151029
  Receipt Date: 20160429
  Transmission Date: 20160815
  Serious: Yes (Hospitalization, Other)
  Sender: FDA-Public Use
  Company Number: CA-GILEAD-2015-0179538

PATIENT
  Age: 85 Year
  Sex: Male

DRUGS (4)
  1. IDELALISIB [Suspect]
     Active Substance: IDELALISIB
     Dosage: UNK UNK, QD
     Route: 048
  2. IDELALISIB [Suspect]
     Active Substance: IDELALISIB
     Indication: CHRONIC LYMPHOCYTIC LEUKAEMIA
     Dosage: 150 MG, BID
     Route: 048
     Dates: start: 20150609, end: 20151004
  3. IDELALISIB [Suspect]
     Active Substance: IDELALISIB
     Dosage: 100 MG, BID
     Route: 048
     Dates: start: 20151103, end: 2016
  4. IDELALISIB [Suspect]
     Active Substance: IDELALISIB
     Dosage: UNK, QD
     Route: 048
     Dates: start: 20151103, end: 201512

REACTIONS (9)
  - Drug ineffective [Unknown]
  - Increased upper airway secretion [Unknown]
  - Bone pain [Unknown]
  - Drug dose omission [Unknown]
  - Off label use [Unknown]
  - Headache [Recovered/Resolved]
  - Pancytopenia [Unknown]
  - Oropharyngeal discomfort [Unknown]
  - Gastrointestinal fungal infection [Unknown]

NARRATIVE: CASE EVENT DATE: 2015
